FAERS Safety Report 4533648-4 (Version None)
Quarter: 2004Q4

REPORT INFORMATION
  Report Type: 
  Country: None (occurrence: None)
  Receive Date: 20041207
  Receipt Date: 20031202
  Transmission Date: 20050328
  Serious: Yes (Other)
  Sender: FDA-Public Use
  Company Number: 353236

PATIENT
  Age: 13 Year
  Sex: Female
  Weight: 56.7 kg

DRUGS (1)
  1. TAMIFLU [Suspect]
     Indication: DRUG USE FOR UNKNOWN INDICATION
     Dosage: 75 MG    1 PER DAY    ORAL
     Route: 048
     Dates: start: 20031119, end: 20031127

REACTIONS (3)
  - CONFUSIONAL STATE [None]
  - CONVULSION [None]
  - PYREXIA [None]
